FAERS Safety Report 6966433 (Version 7)
Quarter: 2012Q4

REPORT INFORMATION
  Report Type: Report from Study
  Country: US (occurrence: US)
  Receive Date: 20090410
  Receipt Date: 20121017
  Transmission Date: 20130627
  Serious: Yes (Other)
  Sender: FDA-Public Use
  Company Number: US-JNJFOC-20090401390

PATIENT
  Age: 11 Year
  Sex: Female
  Weight: 33.38 kg

DRUGS (18)
  1. INFLIXIMAB [Suspect]
     Indication: CROHN^S DISEASE
     Route: 042
  2. REMICADE [Suspect]
     Indication: CROHN^S DISEASE
     Route: 042
     Dates: start: 20060315, end: 20070301
  3. REMICADE [Suspect]
     Indication: CROHN^S DISEASE
     Route: 042
     Dates: start: 20080103, end: 20080103
  4. PENTASA [Concomitant]
     Route: 048
  5. FERROUS SULFATE [Concomitant]
     Route: 048
  6. ANTIBIOTICS [Concomitant]
     Indication: INFLAMMATORY BOWEL DISEASE
  7. NYSTATIN [Concomitant]
     Route: 061
  8. FISH OIL [Concomitant]
     Route: 048
  9. MULTIVITAMIN [Concomitant]
     Route: 048
  10. ZINC SULFATE [Concomitant]
     Route: 048
  11. OMEGA 3 FATTY ACID [Concomitant]
  12. 5-AMINOSALICYLIC ACID [Concomitant]
     Route: 054
  13. KENALOG [Concomitant]
  14. KETOCONAZOLE [Concomitant]
  15. ZOSYN [Concomitant]
  16. LEVAQUIN [Concomitant]
  17. CEPHALEXIN [Concomitant]
  18. ACETAMINOPHEN WITH CODEINE [Concomitant]

REACTIONS (3)
  - Retroperitoneal abscess [Recovered/Resolved with Sequelae]
  - Anaphylactic reaction [Unknown]
  - Infusion related reaction [Unknown]
